FAERS Safety Report 11781848 (Version 1)
Quarter: 2015Q4

REPORT INFORMATION
  Report Type: Spontaneous
  Country: US (occurrence: US)
  Receive Date: 20151126
  Receipt Date: 20151126
  Transmission Date: 20160305
  Serious: Yes (Hospitalization, Other)
  Sender: FDA-Public Use
  Company Number: US-ASTRAZENECA-2015SF12981

PATIENT
  Age: 18279 Day
  Sex: Female
  Weight: 86.2 kg

DRUGS (13)
  1. LYRICA [Suspect]
     Active Substance: PREGABALIN
     Indication: NECK PAIN
     Dosage: 50MG AM 150MG PM
     Route: 048
     Dates: start: 2010
  2. FLUTICASONE [Concomitant]
     Active Substance: FLUTICASONE\FLUTICASONE PROPIONATE
     Indication: NASAL CONGESTION
     Dosage: 50MCG ONE SPRAY IN EACH NOSTRIL AS NEEDED
     Route: 045
  3. METHYLPHENIDATE. [Concomitant]
     Active Substance: METHYLPHENIDATE
     Indication: CEREBROVASCULAR ACCIDENT
     Dosage: 10 MG TABLET BY MOUTH IN THE MORNING AND ONE 10MG TABLET AFTER LUNCH (20MG)
     Route: 048
  4. BUPROPION. [Concomitant]
     Active Substance: BUPROPION
     Dosage: 200MG TABLET BYMOUTH IN THE MORNING AND NIGHT
     Route: 048
  5. ARMOUR THYROID [Concomitant]
     Active Substance: THYROID, PORCINE\THYROID, UNSPECIFIED
     Indication: THYROID DISORDER
     Route: 048
  6. TRAZODONE [Concomitant]
     Active Substance: TRAZODONE HYDROCHLORIDE
     Indication: SLEEP DISORDER
     Dosage: 50MG TABLET BY MOUTH 3-4 TABLETS AT NIGHT
     Route: 048
  7. SEROQUEL [Suspect]
     Active Substance: QUETIAPINE FUMARATE
     Route: 048
  8. PRISTIQ EXTENDED RELEASE [Suspect]
     Active Substance: DESVENLAFAXINE SUCCINATE
     Indication: CEREBROVASCULAR ACCIDENT
     Route: 048
     Dates: start: 2005
  9. VICODIN [Concomitant]
     Active Substance: ACETAMINOPHEN\HYDROCODONE BITARTRATE
  10. PROGESTERONE. [Concomitant]
     Active Substance: PROGESTERONE
     Indication: HOT FLUSH
     Route: 048
  11. PRISTIQ EXTENDED RELEASE [Suspect]
     Active Substance: DESVENLAFAXINE SUCCINATE
     Indication: CEREBROVASCULAR ACCIDENT
     Route: 048
  12. MUPIROCIN. [Concomitant]
     Active Substance: MUPIROCIN
     Indication: NASAL CONGESTION
     Dosage: 2% OINTMENT PUT FIFTH OF TUBE IN SALINE SOLUTION
  13. LYRICA [Suspect]
     Active Substance: PREGABALIN
     Indication: NECK PAIN
     Route: 048
     Dates: start: 2010

REACTIONS (3)
  - Activities of daily living impaired [Unknown]
  - Pain [Unknown]
  - Haemorrhagic stroke [Recovering/Resolving]

NARRATIVE: CASE EVENT DATE: 19990729
